FAERS Safety Report 7717306 (Version 7)
Quarter: 2016Q2

REPORT INFORMATION
  Report Type: Report from Study
  Country: JP (occurrence: JP)
  Receive Date: 20101217
  Receipt Date: 20160518
  Transmission Date: 20160815
  Serious: Yes (Death, Hospitalization, Other)
  Sender: FDA-Public Use
  Company Number: JP-ROCHE-739940

PATIENT
  Age: 71 Year
  Sex: Female
  Weight: 43 kg

DRUGS (32)
  1. FLUOROURACIL. [Suspect]
     Active Substance: FLUOROURACIL
     Dosage: INTRAVENOUS BOLUS
     Route: 041
     Dates: start: 20091111, end: 2010
  2. TEPRENONE [Concomitant]
     Active Substance: TEPRENONE
     Route: 048
  3. BEVACIZUMAB [Suspect]
     Active Substance: BEVACIZUMAB
     Indication: COLON CANCER RECURRENT
     Route: 041
  4. BEVACIZUMAB [Suspect]
     Active Substance: BEVACIZUMAB
     Route: 041
     Dates: start: 20091111, end: 2010
  5. BEVACIZUMAB [Suspect]
     Active Substance: BEVACIZUMAB
     Route: 041
     Dates: start: 20100811, end: 20101119
  6. FLUOROURACIL. [Suspect]
     Active Substance: FLUOROURACIL
     Route: 041
     Dates: start: 20101215, end: 20101217
  7. LEVOLEUCOVORIN CALCIUM. [Suspect]
     Active Substance: LEVOLEUCOVORIN CALCIUM
     Dosage: REPORTED AS: LEVOFOLINATE CALCIUM)
     Route: 041
     Dates: start: 20100811, end: 20101119
  8. VOLTAREN [Concomitant]
     Active Substance: DICLOFENAC SODIUM
     Route: 048
  9. LAC-B [Concomitant]
     Active Substance: BIFIDOBACTERIUM SPP.
     Route: 048
  10. FLUOROURACIL. [Suspect]
     Active Substance: FLUOROURACIL
     Route: 041
     Dates: start: 20101215, end: 20101215
  11. GABAPEN [Concomitant]
     Active Substance: GABAPENTIN
     Route: 048
  12. DICLOFENAC [Concomitant]
     Active Substance: DICLOFENAC
     Route: 048
  13. IRINOTECAN HYDROCHLORIDE. [Suspect]
     Active Substance: IRINOTECAN HYDROCHLORIDE
     Route: 041
     Dates: start: 20101215, end: 20101215
  14. LEVOLEUCOVORIN CALCIUM. [Suspect]
     Active Substance: LEVOLEUCOVORIN CALCIUM
     Route: 041
     Dates: start: 20101215, end: 20101215
  15. MOHRUS [Concomitant]
     Active Substance: KETOPROFEN
     Dosage: PROPERLY
     Route: 062
  16. FLUOROURACIL. [Suspect]
     Active Substance: FLUOROURACIL
     Indication: COLON CANCER RECURRENT
     Route: 041
     Dates: start: 20090710
  17. FLUOROURACIL. [Suspect]
     Active Substance: FLUOROURACIL
     Dosage: ROUTE: INTRAVENOUS BOLUS
     Route: 040
     Dates: start: 20090710
  18. FLUOROURACIL. [Suspect]
     Active Substance: FLUOROURACIL
     Route: 041
     Dates: start: 20091111, end: 2010
  19. DAI-KENCHU-TO [Concomitant]
     Active Substance: MALTOSE
     Dosage: REPORTED AS:DAI-KENCHU-TO(DAI-KENCHU-TO), FORM: GRANULATED POWDER
     Route: 048
  20. BEVACIZUMAB [Suspect]
     Active Substance: BEVACIZUMAB
     Route: 041
     Dates: start: 20101215, end: 20101215
  21. IRINOTECAN HYDROCHLORIDE. [Suspect]
     Active Substance: IRINOTECAN HYDROCHLORIDE
     Indication: COLON CANCER
     Dosage: REPORTED AS: CAMPTO(IRINOTECAN HYDROCHLORIDE)
     Route: 041
     Dates: start: 20100811, end: 20101119
  22. PYRIDOXAL PHOSPHATE [Concomitant]
     Active Substance: PYRIDOXAL PHOSPHATE
     Dosage: REPORTED AS:PYDOXAL TAB(PYRIDOXAL PHOSPHATE
     Route: 048
  23. SELBEX [Concomitant]
     Active Substance: TEPRENONE
     Dosage: REPORTED AS : SELBEX (TEPRENONE)
     Route: 048
  24. FLUOROURACIL. [Suspect]
     Active Substance: FLUOROURACIL
     Dosage: ROUTE: INTRAVENOUS BOLUS
     Route: 041
     Dates: start: 20100811, end: 20101119
  25. LEVOLEUCOVORIN CALCIUM. [Suspect]
     Active Substance: LEVOLEUCOVORIN CALCIUM
     Indication: COLON CANCER RECURRENT
     Route: 041
     Dates: start: 20090710
  26. MAGNESIUM OXIDE. [Concomitant]
     Active Substance: MAGNESIUM OXIDE
     Indication: COLON CANCER
     Route: 048
  27. TAKEPRON [Concomitant]
     Active Substance: LANSOPRAZOLE
     Route: 048
  28. ELPLAT [Concomitant]
     Active Substance: OXALIPLATIN
     Indication: COLON CANCER RECURRENT
     Route: 042
     Dates: start: 20090710, end: 20100721
  29. FLUOROURACIL. [Suspect]
     Active Substance: FLUOROURACIL
     Dosage: ROUTE: INTRAVENOUS DRIP
     Route: 041
     Dates: start: 20100811, end: 20101121
  30. LEVOLEUCOVORIN CALCIUM. [Suspect]
     Active Substance: LEVOLEUCOVORIN CALCIUM
     Route: 041
     Dates: start: 20091111, end: 2010
  31. HACHIAZULE [Concomitant]
     Dosage: OROPHARINGEAL
     Route: 050
  32. OXYCONTIN [Concomitant]
     Active Substance: OXYCODONE HYDROCHLORIDE
     Route: 048

REACTIONS (10)
  - Diarrhoea [Recovering/Resolving]
  - Large intestine perforation [Unknown]
  - Sepsis [Recovered/Resolved]
  - Urinary tract infection [Recovered/Resolved]
  - Intestinal perforation [Recovered/Resolved]
  - Disease progression [Fatal]
  - Dehydration [Unknown]
  - Spinal compression fracture [Unknown]
  - Abdominal infection [Unknown]
  - Peritonitis [Unknown]

NARRATIVE: CASE EVENT DATE: 2010
